FAERS Safety Report 7118333-7 (Version None)
Quarter: 2010Q4

REPORT INFORMATION
  Report Type: 
  Country: None (occurrence: None)
  Receive Date: 20101123
  Receipt Date: 20101117
  Transmission Date: 20110411
  Serious: Yes (Death)
  Sender: FDA-Public Use
  Company Number: PHHY2010IN78180

PATIENT
  Sex: Female

DRUGS (2)
  1. SANDOSTATIN LAR [Suspect]
     Dosage: 10 MG
     Route: 030
  2. SANDOSTATIN LAR [Suspect]
     Dosage: 20 MG

REACTIONS (1)
  - DEATH [None]
